FAERS Safety Report 4759570-6 (Version None)
Quarter: 2005Q3

REPORT INFORMATION
  Report Type: 
  Country: None (occurrence: None)
  Receive Date: 20050831
  Receipt Date: 20050818
  Transmission Date: 20060218
  Serious: Yes (Death)
  Sender: FDA-Public Use
  Company Number: S05-USA-04037-01

PATIENT
  Age: 23 Year
  Sex: Male

DRUGS (6)
  1. LEXAPRO [Suspect]
     Indication: BIPOLAR DISORDER
     Dosage: 20 MG QD PO
     Route: 048
     Dates: start: 20040701, end: 20040812
  2. HEROIN [Suspect]
     Dosage: UNK
     Route: 065
     Dates: start: 19980101, end: 20040811
  3. FLEXERIL [Concomitant]
  4. TRAZODONE [Concomitant]
  5. ALLEGRA [Concomitant]
  6. MUSCLE RELAXER [Concomitant]

REACTIONS (2)
  - ADVERSE EVENT [None]
  - OVERDOSE [None]
